FAERS Safety Report 7342027-6 (Version None)
Quarter: 2011Q1

REPORT INFORMATION
  Report Type: 
  Country: None (occurrence: None)
  Receive Date: 20110309
  Receipt Date: 20110302
  Transmission Date: 20110831
  Serious: Yes (Hospitalization, Other)
  Sender: FDA-Public Use
  Company Number: US-ABBOTT-11P-163-0709273-00

PATIENT
  Sex: Male
  Weight: 102.15 kg

DRUGS (7)
  1. LUPRON DEPOT [Suspect]
     Dates: start: 20100301
  2. LUPRON DEPOT [Suspect]
     Indication: PROSTATE CANCER
     Dates: start: 20061109
  3. UNKNOWN INHALER [Concomitant]
     Indication: ASTHMA
  4. LUPRON DEPOT [Suspect]
     Dates: start: 20080812, end: 20091101
  5. UNKNOWN INHALER [Concomitant]
     Indication: CHRONIC OBSTRUCTIVE PULMONARY DISEASE
  6. LUPRON DEPOT [Suspect]
     Dates: start: 20070701
  7. VERAPAMIL [Concomitant]
     Indication: HYPERTENSION

REACTIONS (19)
  - FLUSHING [None]
  - INJECTION SITE PAIN [None]
  - ABDOMINAL PAIN [None]
  - CHEILITIS [None]
  - ANGINA PECTORIS [None]
  - LYMPHOEDEMA [None]
  - FATIGUE [None]
  - BACTERIAL INFECTION [None]
  - DYSPNOEA [None]
  - SINUSITIS [None]
  - COUGH [None]
  - METASTASES TO BONE [None]
  - HYPERHIDROSIS [None]
  - HEADACHE [None]
  - HAEMOPTYSIS [None]
  - ERYTHEMA [None]
  - SINUS OPERATION [None]
  - HYPERTENSION [None]
  - SPUTUM DISCOLOURED [None]
